FAERS Safety Report 20078003 (Version 6)
Quarter: 2023Q1

REPORT INFORMATION
  Report Type: Other
  Country: AU (occurrence: AU)
  Receive Date: 20211117
  Receipt Date: 20230104
  Transmission Date: 20230418
  Serious: Yes (Hospitalization, Other)
  Sender: FDA-Public Use
  Company Number: AU-TOLMAR, INC.-21AU029998

PATIENT
  Age: 69 Year
  Sex: Male

DRUGS (1)
  1. ELIGARD [Suspect]
     Active Substance: LEUPROLIDE ACETATE
     Indication: Prostate cancer
     Dosage: 22.5 MILLIGRAM, Q 3 MONTH

REACTIONS (15)
  - Cellulitis [Unknown]
  - Herpes zoster [Recovered/Resolved]
  - Hormone-refractory prostate cancer [Unknown]
  - COVID-19 [Unknown]
  - Intentional dose omission [Unknown]
  - Mobility decreased [Unknown]
  - Headache [Unknown]
  - Pain [Unknown]
  - Muscle atrophy [Unknown]
  - Bone pain [Unknown]
  - Asthenia [Unknown]
  - Weight increased [Unknown]
  - Prostatic specific antigen increased [Unknown]
  - Depressed mood [Unknown]
  - Myalgia [Unknown]

NARRATIVE: CASE EVENT DATE: 20211206
